FAERS Safety Report 8271063 (Version 3)
Quarter: 2013Q2

REPORT INFORMATION
  Report Type: Spontaneous
  Country: US (occurrence: None)
  Receive Date: 20111122
  Receipt Date: 20120426
  Transmission Date: 20140414
  Serious: Yes (Other)
  Sender: FDA-Public Use
  Company Number: PHHY2011US63859

PATIENT
  Age: 28 Year
  Sex: Female
  Weight: 67.1 kg

DRUGS (4)
  1. GILENYA [Suspect]
     Indication: MULTIPLE SCLEROSIS
     Dosage: 0.5 MG, QD, ORAL
     Route: 048
     Dates: start: 20110531
  2. PAROXETINE HYDROCHLORIDE [Concomitant]
  3. ZOLPIDEM [Concomitant]
  4. PROTONIX [Concomitant]

REACTIONS (13)
  - DISTURBANCE IN ATTENTION [None]
  - NAUSEA [None]
  - FATIGUE [None]
  - DIZZINESS [None]
  - Feeling abnormal [None]
  - Heart rate increased [None]
  - Chest pain [None]
  - Neck pain [None]
  - Musculoskeletal pain [None]
  - Pain in extremity [None]
  - Heart rate decreased [None]
  - Cough [None]
  - Multiple sclerosis relapse [None]
